FAERS Safety Report 13071322 (Version 3)
Quarter: 2017Q3

REPORT INFORMATION
  Report Type: Spontaneous
  Country: US (occurrence: US)
  Receive Date: 20161229
  Receipt Date: 20170728
  Transmission Date: 20171127
  Serious: Yes (Other)
  Sender: FDA-Public Use
  Company Number: US-TEVA-723000USA

PATIENT
  Sex: Male
  Weight: 91 kg

DRUGS (13)
  1. LOVASTATIN. [Concomitant]
     Active Substance: LOVASTATIN
     Route: 065
  2. VITAMIN D3 [Concomitant]
     Active Substance: CHOLECALCIFEROL
     Route: 065
  3. MAG OX [Concomitant]
     Active Substance: MAGNESIUM OXIDE
     Route: 065
  4. SINGULAIR [Concomitant]
     Active Substance: MONTELUKAST SODIUM
     Route: 065
  5. WAL-DRYL ALERGY [Concomitant]
     Dosage: 2MCI 25MG
     Route: 065
     Dates: end: 20160721
  6. VITAMIN C [Concomitant]
     Active Substance: ASCORBIC ACID
     Route: 065
  7. METAMUCIL [Concomitant]
     Active Substance: PLANTAGO SEED
     Route: 065
     Dates: start: 20150707
  8. CALCIUM, MANGESIUM, ZINC [Concomitant]
  9. LISINOPRIL-HCTZ [Concomitant]
     Active Substance: HYDROCHLOROTHIAZIDE\LISINOPRIL
     Dosage: 20-12.5MG
     Route: 065
     Dates: end: 20160721
  10. METOPROLOL TARTRATE. [Concomitant]
     Active Substance: METOPROLOL TARTRATE
     Route: 065
  11. LOSARTAN/HCTZ [Concomitant]
     Active Substance: HYDROCHLOROTHIAZIDE\LOSARTAN
     Dosage: 50/12.5MG
     Route: 065
  12. FINASTERIDE. [Suspect]
     Active Substance: FINASTERIDE
     Route: 065
     Dates: start: 20140616
  13. WAL-MUCIL [Concomitant]
     Dosage: 1 TBS AND 8 OZ. WATER DAILY
     Route: 065

REACTIONS (2)
  - Aortic aneurysm [Unknown]
  - Urinary tract disorder [Not Recovered/Not Resolved]
